FAERS Safety Report 23282037 (Version 1)
Quarter: 2023Q4

REPORT INFORMATION
  Report Type: Spontaneous
  Country: US (occurrence: None)
  Receive Date: 20231208
  Receipt Date: 20231208
  Transmission Date: 20240109
  Serious: Yes (Other)
  Sender: FDA-Public Use
  Company Number: None

PATIENT
  Age: 6 Day
  Sex: Female
  Weight: 4.01 kg

DRUGS (1)
  1. BEYFORTUS [Suspect]
     Active Substance: NIRSEVIMAB-ALIP
     Dosage: OTHER FREQUENCY : ONE TIME;?
     Route: 030
     Dates: start: 20231121

REACTIONS (2)
  - Depressed level of consciousness [None]
  - Poor feeding infant [None]

NARRATIVE: CASE EVENT DATE: 20231121
